FAERS Safety Report 8846596 (Version 1)
Quarter: 2012Q4

REPORT INFORMATION
  Report Type: 
  Country: US (occurrence: US)
  Receive Date: 20121017
  Receipt Date: 20121017
  Transmission Date: 20130627
  Serious: Yes (Other)
  Sender: FDA-Public Use
  Company Number: US-ROCHE-1137419

PATIENT
  Sex: Female
  Weight: 69.4 kg

DRUGS (3)
  1. NUTROPIN [Suspect]
     Indication: HYPOPITUITARISM
     Route: 065
  2. LEVOTHYROXINE [Concomitant]
  3. PREDNISONE [Concomitant]
     Route: 065

REACTIONS (12)
  - Adrenocortical insufficiency acute [Recovered/Resolved]
  - Blood cholesterol increased [Unknown]
  - Hypotension [Unknown]
  - Diarrhoea [Unknown]
  - Nausea [Not Recovered/Not Resolved]
  - Paranasal sinus hypersecretion [Unknown]
  - Pain [Unknown]
  - Tenderness [Unknown]
  - Chills [Unknown]
  - Ear pain [Recovered/Resolved]
  - Tremor [Unknown]
  - Rhinitis [Unknown]
